FAERS Safety Report 7979532-5 (Version None)
Quarter: 2011Q4

REPORT INFORMATION
  Report Type: 
  Country: None (occurrence: None)
  Receive Date: 20111214
  Receipt Date: 20111130
  Transmission Date: 20120403
  Serious: No
  Sender: FDA-Public Use
  Company Number: PHHY2011FR105536

PATIENT
  Age: 18 Year
  Sex: Male

DRUGS (5)
  1. TERCIAN [Concomitant]
     Dosage: UNK UKN, UNK
  2. ABILIFY [Concomitant]
     Dosage: UNK UKN, UNK
  3. CLOZAPINE [Suspect]
     Indication: SCHIZOPHRENIA
     Dosage: 300 MG, UNK
     Dates: start: 20110701
  4. TOPIRAMATE [Concomitant]
     Dosage: 200 MG, DAILY
  5. TOPIRAMATE [Concomitant]
     Dosage: 50 MG DAILY

REACTIONS (3)
  - DRUG INTERACTION [None]
  - TACHYCARDIA [None]
  - ANTIPSYCHOTIC DRUG LEVEL BELOW THERAPEUTIC [None]
